FAERS Safety Report 20209548 (Version 3)
Quarter: 2022Q1

REPORT INFORMATION
  Report Type: Spontaneous
  Country: CA (occurrence: CA)
  Receive Date: 20211221
  Receipt Date: 20220310
  Transmission Date: 20220423
  Serious: Yes (Other)
  Sender: FDA-Public Use
  Company Number: CA-SA-SAC20211216000058

PATIENT
  Age: 51 Year
  Sex: Female

DRUGS (3)
  1. ARAVA [Suspect]
     Active Substance: LEFLUNOMIDE
     Indication: Product used for unknown indication
     Dosage: UNK
     Route: 065
  2. RINVOQ [Suspect]
     Active Substance: UPADACITINIB
     Indication: Rheumatoid arthritis
     Dosage: 15 MG, QD
     Route: 048
     Dates: start: 20210227
  3. RINVOQ [Suspect]
     Active Substance: UPADACITINIB
     Dosage: 15 MG, QD
     Route: 048
     Dates: start: 20210315

REACTIONS (12)
  - Colitis ulcerative [Unknown]
  - Peripheral swelling [Not Recovered/Not Resolved]
  - Pain [Not Recovered/Not Resolved]
  - Pain in extremity [Not Recovered/Not Resolved]
  - Inflammation [Recovering/Resolving]
  - Gait disturbance [Unknown]
  - Skin mass [Not Recovered/Not Resolved]
  - Mallet finger [Not Recovered/Not Resolved]
  - Dyspepsia [Not Recovered/Not Resolved]
  - Colitis [Unknown]
  - Therapeutic product effect incomplete [Unknown]
  - Drug ineffective [Unknown]

NARRATIVE: CASE EVENT DATE: 20200101
